FAERS Safety Report 23545714 (Version 1)
Quarter: 2024Q1

REPORT INFORMATION
  Report Type: Spontaneous
  Country: US (occurrence: US)
  Receive Date: 20240220
  Receipt Date: 20240220
  Transmission Date: 20240409
  Serious: No
  Sender: FDA-Public Use
  Company Number: US-PERRIGO-23US014874

PATIENT
  Age: 3 Year
  Sex: Male

DRUGS (1)
  1. IBUPROFEN [Suspect]
     Active Substance: IBUPROFEN
     Indication: Pyrexia
     Dosage: 100 MG, SINGLE
     Route: 048
     Dates: start: 20231218, end: 20231218

REACTIONS (2)
  - Vomiting [Unknown]
  - Expired product administered [Unknown]

NARRATIVE: CASE EVENT DATE: 20231218
